FAERS Safety Report 9833993 (Version 1)
Quarter: 2020Q3

REPORT INFORMATION
  Report Type: Report from Study
  Country: US (occurrence: US)
  Receive Date: 20140122
  Receipt Date: 20140122
  Transmission Date: 20201104
  Serious: Yes (Other)
  Sender: FDA-Public Use
  Company Number: US-ROCHE-1336442

PATIENT
  Sex: Female

DRUGS (3)
  1. PROMETRIUM [Concomitant]
     Active Substance: PROGESTERONE
  2. CLIMARA [Concomitant]
     Active Substance: ESTRADIOL
  3. IBANDRONIC ACID. [Suspect]
     Active Substance: IBANDRONIC ACID
     Indication: OSTEOPOROSIS
     Route: 065

REACTIONS (2)
  - Femur fracture [Unknown]
  - Stress fracture [Recovering/Resolving]
